FAERS Safety Report 11447709 (Version 4)
Quarter: 2015Q4

REPORT INFORMATION
  Report Type: Spontaneous
  Country: US (occurrence: US)
  Receive Date: 20150902
  Receipt Date: 20151204
  Transmission Date: 20160304
  Serious: Yes (Death, Hospitalization, Other)
  Sender: FDA-Public Use
  Company Number: US-009507513-1509USA000091

PATIENT
  Age: 57 Year
  Sex: Male

DRUGS (2)
  1. EMEND [Suspect]
     Active Substance: APREPITANT
     Dosage: 150 MG, UNK
     Route: 042
     Dates: start: 20150812, end: 20150812
  2. EMEND [Suspect]
     Active Substance: APREPITANT
     Indication: NEOPLASM MALIGNANT
     Dosage: 150 MG, UNK
     Route: 042
     Dates: start: 20150805, end: 20150805

REACTIONS (4)
  - Adverse event [Fatal]
  - Product use issue [Unknown]
  - Ileus [Unknown]
  - Enteritis [Not Recovered/Not Resolved]

NARRATIVE: CASE EVENT DATE: 201508
